FAERS Safety Report 6995554 (Version 6)
Quarter: 2014Q4

REPORT INFORMATION
  Report Type: Spontaneous
  Country: JP (occurrence: JP)
  Receive Date: 20090515
  Receipt Date: 20141118
  Transmission Date: 20150529
  Serious: Yes (Hospitalization, Other)
  Sender: FDA-Public Use
  Company Number: PHHY2009JP17694

PATIENT
  Age: 70 Year
  Sex: Male
  Weight: 51 kg

DRUGS (4)
  1. GLIVEC [Suspect]
     Active Substance: IMATINIB MESYLATE
     Dosage: 400 MG, DAILY
     Dates: end: 200702
  2. HYDROXYCARBAMIDE [Concomitant]
     Active Substance: HYDROXYUREA
     Dosage: 20 MG, UNK
     Route: 048
     Dates: start: 200702, end: 200902
  3. GLIVEC [Suspect]
     Active Substance: IMATINIB MESYLATE
     Indication: CHRONIC MYELOID LEUKAEMIA
     Dosage: 400 MG, QD
     Route: 048
     Dates: start: 20061024, end: 20080428
  4. HYDROXYCARBAMIDE [Concomitant]
     Active Substance: HYDROXYUREA
     Dosage: 1000 MG, UNK
     Route: 048
     Dates: start: 20071016, end: 20090316

REACTIONS (14)
  - Pulmonary fibrosis [Not Recovered/Not Resolved]
  - Abdominal pain [Recovered/Resolved]
  - Abdominal adhesions [Unknown]
  - Second primary malignancy [Recovered/Resolved]
  - Respiratory disorder [Recovering/Resolving]
  - Hypoxia [Recovered/Resolved]
  - Gastric cancer [Recovered/Resolved]
  - Pleural effusion [Unknown]
  - Haematochezia [Recovered/Resolved]
  - Back pain [Unknown]
  - Ileus [Recovering/Resolving]
  - Vomiting [Recovering/Resolving]
  - Interstitial lung disease [Recovered/Resolved with Sequelae]
  - Dyspnoea [Unknown]

NARRATIVE: CASE EVENT DATE: 20070214
